FAERS Safety Report 24561450 (Version 1)
Quarter: 2024Q4

REPORT INFORMATION
  Report Type: Spontaneous
  Country: GB (occurrence: GB)
  Receive Date: 20241029
  Receipt Date: 20241029
  Transmission Date: 20250115
  Serious: Yes (Other)
  Sender: TEVA
  Company Number: None

PATIENT
  Age: 25 Year
  Sex: Female
  Weight: 52 kg

DRUGS (3)
  1. FLUCONAZOLE [Suspect]
     Active Substance: FLUCONAZOLE
     Indication: Candida infection
     Dosage: 150MG
     Route: 065
     Dates: start: 20241020, end: 20241020
  2. DESOGESTREL [Concomitant]
     Active Substance: DESOGESTREL
     Indication: Contraception
  3. NITROFURANTOIN [Concomitant]
     Active Substance: NITROFURANTOIN
     Indication: Urinary tract infection
     Dates: end: 20241018

REACTIONS (1)
  - Intermenstrual bleeding [Not Recovered/Not Resolved]

NARRATIVE: CASE EVENT DATE: 20241020
